FAERS Safety Report 25795175 (Version 1)
Quarter: 2025Q3

REPORT INFORMATION
  Report Type: Spontaneous
  Country: GB (occurrence: GB)
  Receive Date: 20250912
  Receipt Date: 20250912
  Transmission Date: 20251020
  Serious: No
  Sender: ALKEM
  Company Number: None

PATIENT
  Age: 42 Year
  Sex: Female

DRUGS (2)
  1. VARENICLINE [Suspect]
     Active Substance: VARENICLINE
     Indication: Smoking cessation therapy
     Route: 065
  2. VARENICLINE [Suspect]
     Active Substance: VARENICLINE
     Route: 065

REACTIONS (3)
  - Illness [Recovered/Resolved]
  - Contraindicated product prescribed [Unknown]
  - Contraindicated product administered [Unknown]
